FAERS Safety Report 5919834-7 (Version None)
Quarter: 2008Q4

REPORT INFORMATION
  Report Type: 
  Country: None (occurrence: None)
  Receive Date: 20081015
  Receipt Date: 20081003
  Transmission Date: 20090506
  Serious: Yes (Other)
  Sender: FDA-Public Use
  Company Number: FR-PFIZER INC-2008083287

PATIENT
  Sex: Female

DRUGS (1)
  1. VIBRAMYCIN [Suspect]
     Indication: LYME DISEASE
     Route: 048
     Dates: start: 20080101, end: 20080101

REACTIONS (4)
  - DYSPHAGIA [None]
  - HAEMOGLOBIN DECREASED [None]
  - MELAENA [None]
  - OESOPHAGEAL PAIN [None]
